FAERS Safety Report 4631476-2 (Version None)
Quarter: 2005Q2

REPORT INFORMATION
  Report Type: 
  Country: None (occurrence: None)
  Receive Date: 20050407
  Receipt Date: 20050322
  Transmission Date: 20051028
  Serious: Yes (Hospitalization)
  Sender: FDA-Public Use
  Company Number: 106263ISR

PATIENT

DRUGS (3)
  1. FLUOROURACIL [Suspect]
     Indication: RENAL CELL CARCINOMA STAGE UNSPECIFIED
  2. INTERFERON ALFA-2B [Suspect]
     Dates: end: 20041229
  3. PROLEUKIN [Suspect]
     Indication: RENAL CELL CARCINOMA STAGE UNSPECIFIED

REACTIONS (14)
  - ASTHENIA [None]
  - BODY TEMPERATURE INCREASED [None]
  - DIARRHOEA [None]
  - DYSPNOEA [None]
  - NAUSEA [None]
  - OXYGEN SATURATION DECREASED [None]
  - PLEURAL EFFUSION [None]
  - PNEUMOTHORAX [None]
  - PRODUCTIVE COUGH [None]
  - PYREXIA [None]
  - RASH [None]
  - RESPIRATORY RATE INCREASED [None]
  - THYROIDITIS [None]
  - VOMITING [None]
